FAERS Safety Report 7603187 (Version 3)
Quarter: 2014Q1

REPORT INFORMATION
  Report Type: Spontaneous
  Country: UY (occurrence: UY)
  Receive Date: 20100923
  Receipt Date: 20140312
  Transmission Date: 20141002
  Serious: Yes (Hospitalization)
  Sender: FDA-Public Use
  Company Number: UY-ROCHE-727267

PATIENT
  Age: 18 Year
  Sex: Male
  Weight: 76 kg

DRUGS (2)
  1. ISOTRETINOIN [Suspect]
     Indication: ACNE
     Dosage: 40 MG ON ONE DAY AND 20 MG ON ANOTHER DAY
     Route: 048
     Dates: start: 200907, end: 200911
  2. ISOTRETINOIN [Suspect]
     Dosage: 40 MG ON ONE DAY AND 20 MG ON ANOTHER DAY
     Route: 048
     Dates: start: 200911, end: 201002

REACTIONS (3)
  - Thrombocytopenia [Recovering/Resolving]
  - Bone marrow failure [Recovering/Resolving]
  - Transplant [Recovered/Resolved]
